FAERS Safety Report 12689882 (Version 1)
Quarter: 2016Q3

REPORT INFORMATION
  Report Type: Report from Study
  Country: US (occurrence: US)
  Receive Date: 20160826
  Receipt Date: 20160826
  Transmission Date: 20161109
  Serious: Yes (Hospitalization)
  Sender: FDA-Public Use
  Company Number: US-ARIAD-2013US001540

PATIENT
  Age: 75 Year
  Sex: Male
  Weight: 73 kg

DRUGS (11)
  1. LISINOPRIL. [Concomitant]
     Active Substance: LISINOPRIL
     Indication: BLOOD PRESSURE ABNORMAL
     Dosage: 5 MG, QD
  2. IRON [Concomitant]
     Active Substance: IRON
     Dosage: UNK
     Route: 042
  3. ICLUSIG [Suspect]
     Active Substance: PONATINIB
     Indication: CHRONIC MYELOID LEUKAEMIA
     Dosage: 45 MG, UNK
     Route: 048
     Dates: start: 20130116
  4. METOPROLOL SUCCINATE ER [Concomitant]
     Active Substance: METOPROLOL SUCCINATE
     Indication: BLOOD PRESSURE ABNORMAL
     Dosage: 25 MG, BID
  5. MORPHINE SULFATE. [Concomitant]
     Active Substance: MORPHINE SULFATE
     Indication: PAIN
     Dosage: 0.25-1 MG, Q4H
  6. LUPRON [Concomitant]
     Active Substance: LEUPROLIDE ACETATE
     Dosage: UNK
  7. HYOSCYAMINE. [Concomitant]
     Active Substance: HYOSCYAMINE
     Indication: GASTROINTESTINAL DISORDER
     Dosage: 0.125 MG, Q4H PRN
  8. ATORVASTATIN [Concomitant]
     Active Substance: ATORVASTATIN
     Indication: BLOOD CHOLESTEROL ABNORMAL
     Dosage: 40 MG, QD
  9. VESICARE [Concomitant]
     Active Substance: SOLIFENACIN SUCCINATE
     Indication: BLADDER DISORDER
     Dosage: 5 MG, QD
  10. BLOOD TRANSFUSION, AUXILIARY PRODUCTS [Concomitant]
     Active Substance: WHOLE BLOOD
     Dosage: UNK
  11. AZO [Concomitant]
     Active Substance: PHENAZOPYRIDINE HYDROCHLORIDE
     Indication: URINE ABNORMALITY
     Dosage: UNK, BID

REACTIONS (17)
  - Bladder pain [Unknown]
  - Pollakiuria [Unknown]
  - Bladder mass [Unknown]
  - Arthralgia [Recovered/Resolved]
  - Dysuria [Unknown]
  - Dizziness [Unknown]
  - Headache [Unknown]
  - Urosepsis [Unknown]
  - Haematuria [Recovered/Resolved]
  - Gastric haemorrhage [Recovered/Resolved]
  - Oedema peripheral [Recovered/Resolved]
  - Bladder spasm [Unknown]
  - Muscle atrophy [Unknown]
  - Rectal haemorrhage [Unknown]
  - Abdominal pain [Recovered/Resolved]
  - Facial wasting [Unknown]
  - Fatigue [Recovered/Resolved]

NARRATIVE: CASE EVENT DATE: 2013
